FAERS Safety Report 13550234 (Version 1)
Quarter: 2017Q2

REPORT INFORMATION
  Report Type: Spontaneous
  Country: GB (occurrence: GB)
  Receive Date: 20170516
  Receipt Date: 20170516
  Transmission Date: 20170830
  Serious: Yes (Disabling, Other)
  Sender: FDA-Public Use
  Company Number: GB-BAYER-2017-088773

PATIENT
  Age: 39 Year
  Sex: Female
  Weight: 50.79 kg

DRUGS (3)
  1. MIRENA [Suspect]
     Active Substance: LEVONORGESTREL
     Indication: MENORRHAGIA
     Dosage: 20 MCG/24HR, CONT
     Route: 015
     Dates: start: 20150106, end: 20150707
  2. MIRENA [Suspect]
     Active Substance: LEVONORGESTREL
     Indication: CONTRACEPTION
  3. IRON [Concomitant]
     Active Substance: IRON

REACTIONS (14)
  - Disturbance in attention [Recovered/Resolved with Sequelae]
  - Fatigue [Recovered/Resolved with Sequelae]
  - Myalgia [Recovered/Resolved]
  - Anger [Recovered/Resolved with Sequelae]
  - Headache [Recovered/Resolved]
  - Nausea [Recovered/Resolved]
  - Pain [Recovered/Resolved]
  - Feeling abnormal [Recovered/Resolved with Sequelae]
  - Insomnia [Recovered/Resolved with Sequelae]
  - Abnormal loss of weight [Recovering/Resolving]
  - Pituitary tumour [Not Recovered/Not Resolved]
  - Depression [Recovered/Resolved with Sequelae]
  - Menstruation irregular [Recovering/Resolving]
  - Premenstrual syndrome [Recovered/Resolved with Sequelae]

NARRATIVE: CASE EVENT DATE: 20150107
